FAERS Safety Report 21995411 (Version 1)
Quarter: 2023Q1

REPORT INFORMATION
  Report Type: Spontaneous
  Country: US (occurrence: US)
  Receive Date: 20230215
  Receipt Date: 20230215
  Transmission Date: 20230418
  Serious: No
  Sender: FDA-Public Use
  Company Number: US-SA-SAC20230210001382

PATIENT
  Age: 37 Year
  Sex: Female
  Weight: 111.8 kg

DRUGS (10)
  1. DUPIXENT [Suspect]
     Active Substance: DUPILUMAB
     Indication: Nasal polyps
     Dosage: 300 MG, QOW
     Route: 058
  2. LEVOFLOXACIN [Concomitant]
     Active Substance: LEVOFLOXACIN
  3. ACETAMINOPHEN\HYDROCODONE [Concomitant]
     Active Substance: ACETAMINOPHEN\HYDROCODONE
  4. OXCARBAZEPINE [Concomitant]
     Active Substance: OXCARBAZEPINE
  5. BUSPIRONE [Concomitant]
     Active Substance: BUSPIRONE HYDROCHLORIDE
  6. ATOMOXETINE [Concomitant]
     Active Substance: ATOMOXETINE
  7. DULOXETINE [Concomitant]
     Active Substance: DULOXETINE
  8. LISINOPRIL [Concomitant]
     Active Substance: LISINOPRIL
  9. TRAMADOL [Concomitant]
     Active Substance: TRAMADOL
  10. METHYLPREDNISOLONE [Concomitant]
     Active Substance: METHYLPREDNISOLONE

REACTIONS (1)
  - Spinal operation [Unknown]

NARRATIVE: CASE EVENT DATE: 20230201
